FAERS Safety Report 22312943 (Version 1)
Quarter: 2023Q2

REPORT INFORMATION
  Report Type: Report from Study
  Country: FR (occurrence: FR)
  Receive Date: 20230512
  Receipt Date: 20230512
  Transmission Date: 20230721
  Serious: Yes (Other)
  Sender: FDA-Public Use
  Company Number: FR-SUN PHARMACEUTICAL INDUSTRIES LTD-2023RR-388321

PATIENT
  Age: 62 Year
  Sex: Male
  Weight: 80 kg

DRUGS (6)
  1. TILDRAKIZUMAB [Suspect]
     Active Substance: TILDRAKIZUMAB
     Indication: Psoriasis
     Dosage: 2.381 MG (200 MG,1 IN 12 WK)
     Route: 058
     Dates: start: 20211217, end: 20220417
  2. CHOLECALCIFEROL [Concomitant]
     Active Substance: CHOLECALCIFEROL
     Indication: Prophylaxis
     Dosage: 5000 INTERNATIONAL UNIT, MONTHLY, 20 MILLIGRAM PER GRAM
     Route: 048
     Dates: start: 2000
  3. OXAZEPAM [Concomitant]
     Active Substance: OXAZEPAM
     Indication: Prophylaxis
     Dosage: 20 MILLIGRAM PER GRAM
     Route: 048
     Dates: start: 2000
  4. CELECOXIB [Concomitant]
     Active Substance: CELECOXIB
     Indication: Arthralgia
     Dosage: 200 MILLIGRAM PER GRAM
     Route: 048
     Dates: start: 20220120
  5. PREDNISONE [Concomitant]
     Active Substance: PREDNISONE
     Indication: Arthralgia
     Dosage: 15 MILLIGRAM PER GRAM
     Route: 048
     Dates: start: 20220425, end: 20220510
  6. PERINDOPRIL [Concomitant]
     Active Substance: PERINDOPRIL
     Indication: Hypertension
     Dosage: 5 MILLIGRAM PER GRAM
     Route: 048
     Dates: start: 20220120, end: 20220425

REACTIONS (1)
  - Herpes zoster [Recovered/Resolved]

NARRATIVE: CASE EVENT DATE: 20220502
